FAERS Safety Report 16896617 (Version 1)
Quarter: 2019Q4

REPORT INFORMATION
  Report Type: Report from Study
  Country: US (occurrence: US)
  Receive Date: 20191008
  Receipt Date: 20191008
  Transmission Date: 20200122
  Serious: Yes (Other)
  Sender: FDA-Public Use
  Company Number: US-EMD SERONO-9110986

PATIENT
  Age: 62 Year
  Sex: Male

DRUGS (2)
  1. MAVENCLAD [Suspect]
     Active Substance: CLADRIBINE
     Indication: RELAPSING-REMITTING MULTIPLE SCLEROSIS
     Dosage: FIRST CYCLE TREATMENT
     Route: 048
     Dates: start: 20190702
  2. MAVENCLAD [Suspect]
     Active Substance: CLADRIBINE
     Dosage: SECOND CYCLE TREATMENT
     Route: 048
     Dates: end: 20190802

REACTIONS (4)
  - Lymphocyte count decreased [Unknown]
  - Pallor [Unknown]
  - Folliculitis [Unknown]
  - Dark circles under eyes [Unknown]

NARRATIVE: CASE EVENT DATE: 20190806
